FAERS Safety Report 24742597 (Version 1)
Quarter: 2024Q4

REPORT INFORMATION
  Report Type: Spontaneous
  Country: US (occurrence: None)
  Receive Date: 20241217
  Receipt Date: 20241217
  Transmission Date: 20250114
  Serious: Yes (Hospitalization)
  Sender: Public
  Company Number: None

PATIENT
  Age: 2 Year
  Sex: Female
  Weight: 11.9 kg

DRUGS (2)
  1. CYCLOPHOSPHAMIDE [Suspect]
     Active Substance: CYCLOPHOSPHAMIDE
     Dates: end: 20240823
  2. TOPOTECAN [Suspect]
     Active Substance: TOPOTECAN HYDROCHLORIDE
     Dates: end: 20240824

REACTIONS (9)
  - Hypertension [None]
  - Abdominal distension [None]
  - Tachycardia [None]
  - Pleural effusion [None]
  - Pulmonary hypertension [None]
  - Hypoxia [None]
  - Hypotonia [None]
  - Retroperitoneal mass [None]
  - Blood fibrinogen decreased [None]

NARRATIVE: CASE EVENT DATE: 20240823
